FAERS Safety Report 9514862 (Version 1)
Quarter: 2013Q1

REPORT INFORMATION
  Report Type: Spontaneous
  Country: US (occurrence: None)
  Receive Date: 20130305
  Receipt Date: 20130305
  Transmission Date: 20140127
  Serious: Yes (Hospitalization)
  Sender: FDA-Public Use
  Company Number: 163-21880-12111925

PATIENT
  Age: 78 Year
  Sex: Male

DRUGS (9)
  1. REVLIMID [Suspect]
     Indication: MYELODYSPLASTIC SYNDROME
     Route: 048
     Dates: start: 20120821
  2. OMEGA 3 (FISH OIL) (UNKNOWN) [Concomitant]
  3. METFORMIN HCL (METFORMIN HYDROCHLORIDE) (UNKNOWN) [Concomitant]
  4. AMLODIPINE BESYLATE (AMLODIPINE BESILATE) (UNKNOWN) [Concomitant]
  5. HYDROCHLOROTHIAZIDE (HYDROCHLOROTHIAZIDE) (UNKNOWN) [Concomitant]
  6. GLUCOSAMINE CHONDROITIN COMPLEX (OSTEOGESIC PLUS) (UNKNOWN) [Concomitant]
  7. VIDAZA (AZACITIDINE) (UNKNOWN) [Concomitant]
  8. ALEVE (NAPROXEN SODIUM) (UNKNOWN) [Concomitant]
  9. MULTIVITAMINS (MULTIVITAMINS) (UNKNOWN) [Concomitant]

REACTIONS (1)
  - Renal failure [None]
